FAERS Safety Report 9463786 (Version 2)
Quarter: 2013Q3

REPORT INFORMATION
  Report Type: Spontaneous
  Country: US (occurrence: US)
  Receive Date: 20130819
  Receipt Date: 20130819
  Transmission Date: 20140515
  Serious: Yes (Hospitalization, Disabling, Other)
  Sender: FDA-Public Use
  Company Number: US-009507513-2011SP051272

PATIENT
  Sex: Female
  Weight: 90.72 kg

DRUGS (3)
  1. NUVARING [Suspect]
     Indication: MENSTRUAL CYCLE MANAGEMENT
     Route: 067
     Dates: end: 20080722
  2. NUVARING [Suspect]
     Indication: POLYCYSTIC OVARIES
  3. YASMIN [Suspect]
     Indication: POLYCYSTIC OVARIES
     Dosage: UNK
     Dates: start: 200807, end: 200811

REACTIONS (14)
  - Pulmonary embolism [Recovering/Resolving]
  - Deep vein thrombosis [Recovered/Resolved]
  - Depression [Unknown]
  - Ovarian cyst [Unknown]
  - Stress [Unknown]
  - Off label use [Unknown]
  - Hypercoagulation [Not Recovered/Not Resolved]
  - Decreased appetite [Unknown]
  - Anxiety [Unknown]
  - Hirsutism [Unknown]
  - Premenstrual syndrome [Unknown]
  - Alopecia [Unknown]
  - Dysmenorrhoea [Unknown]
  - Fatigue [Unknown]
